FAERS Safety Report 6491571-2 (Version None)
Quarter: 2009Q4

REPORT INFORMATION
  Report Type: 
  Country: None (occurrence: None)
  Receive Date: 20091125
  Receipt Date: 20090309
  Transmission Date: 20100525
  Serious: Yes (Hospitalization)
  Sender: FDA-Public Use
  Company Number: 2009BH003861

PATIENT
  Age: 59 Year
  Sex: Male

DRUGS (8)
  1. DIANEAL [Suspect]
     Indication: PERITONEAL DIALYSIS
     Dosage: 12 L ; EVERY DAY ; IP
     Route: 033
     Dates: start: 20020101
  2. DIOVAN [Concomitant]
  3. PHOSLO [Concomitant]
  4. RENATABS [Concomitant]
  5. SENSIPAR [Concomitant]
  6. FOSRENOL [Concomitant]
  7. REGLAN [Concomitant]
  8. HECTOROL [Concomitant]

REACTIONS (1)
  - CHEST PAIN [None]
